FAERS Safety Report 8215734-0 (Version None)
Quarter: 2012Q1

REPORT INFORMATION
  Report Type: 
  Country: None (occurrence: None)
  Receive Date: 20120316
  Receipt Date: 20120313
  Transmission Date: 20120608
  Serious: Yes (Hospitalization)
  Sender: FDA-Public Use
  Company Number: DE-AMGEN-DEUSP2012016446

PATIENT
  Sex: Female

DRUGS (4)
  1. NEULASTA [Suspect]
     Indication: PROPHYLAXIS
  2. DOXORUBICIN HCL [Concomitant]
     Indication: BREAST CANCER
  3. CYCLOPHOSPHAMIDE [Concomitant]
     Indication: BREAST CANCER
  4. DOCETAXEL [Concomitant]
     Indication: BREAST CANCER

REACTIONS (2)
  - ASTHMA [None]
  - HYPERSENSITIVITY [None]
